FAERS Safety Report 5083739-7 (Version None)
Quarter: 2006Q3

REPORT INFORMATION
  Report Type: 
  Country: None (occurrence: None)
  Receive Date: 20060818
  Receipt Date: 20060809
  Transmission Date: 20061208
  Serious: Yes (Hospitalization)
  Sender: FDA-Public Use
  Company Number: US-ROCHE-459152

PATIENT
  Age: 61 Year
  Sex: Female
  Weight: 48.8 kg

DRUGS (13)
  1. CAPECITABINE [Suspect]
     Route: 048
     Dates: start: 20060712
  2. OXALIPLATIN [Suspect]
     Route: 042
     Dates: start: 20060712
  3. LORAZEPAM [Concomitant]
     Route: 048
  4. CALCIUM CARBONATE [Concomitant]
     Route: 048
  5. CEPHALEXIN [Concomitant]
     Route: 048
  6. DEXAMETHASONE [Concomitant]
  7. HYDROMORPHONE HYDROCHLORIDE [Concomitant]
  8. METHADONE HCL [Concomitant]
     Route: 048
  9. GABAPENTIN [Concomitant]
     Route: 048
  10. OLANZAPINE [Concomitant]
     Route: 048
  11. LEVOTHYROXINE SODIUM [Concomitant]
     Route: 048
  12. ONDANSETRON HCL [Concomitant]
  13. SETRALINE HCL [Concomitant]
     Route: 048

REACTIONS (7)
  - ANAEMIA [None]
  - DEHYDRATION [None]
  - DEPRESSION [None]
  - DIARRHOEA [None]
  - FAILURE TO THRIVE [None]
  - FATIGUE [None]
  - THROMBOCYTOPENIA [None]
